FAERS Safety Report 12103882 (Version 2)
Quarter: 2016Q2

REPORT INFORMATION
  Report Type: Spontaneous
  Country: US (occurrence: US)
  Receive Date: 20160223
  Receipt Date: 20160408
  Transmission Date: 20160815
  Serious: Yes (Hospitalization)
  Sender: FDA-Public Use
  Company Number: US-BEH-2016058863

PATIENT
  Sex: Female
  Weight: 51 kg

DRUGS (38)
  1. LIPITOR [Concomitant]
     Active Substance: ATORVASTATIN CALCIUM
  2. GABAPENTIN. [Concomitant]
     Active Substance: GABAPENTIN
  3. VITAMIN D [Concomitant]
     Active Substance: CHOLECALCIFEROL
  4. IRON [Concomitant]
     Active Substance: IRON
  5. PANTOPRAZOLE [Concomitant]
     Active Substance: PANTOPRAZOLE SODIUM
  6. AMIODARONE [Concomitant]
     Active Substance: AMIODARONE
  7. K-DUR [Concomitant]
     Active Substance: POTASSIUM CHLORIDE
  8. HYDRALAZINE [Concomitant]
     Active Substance: HYDRALAZINE HYDROCHLORIDE
  9. LASIX [Concomitant]
     Active Substance: FUROSEMIDE
  10. EPIPEN [Concomitant]
     Active Substance: EPINEPHRINE
  11. ACETYLCYSTEINE. [Concomitant]
     Active Substance: ACETYLCYSTEINE
  12. LANTUS [Concomitant]
     Active Substance: INSULIN GLARGINE
  13. SPIRIVA [Concomitant]
     Active Substance: TIOTROPIUM BROMIDE MONOHYDRATE
  14. FLOMAX [Concomitant]
     Active Substance: TAMSULOSIN HYDROCHLORIDE
  15. TRAZODONE [Concomitant]
     Active Substance: TRAZODONE HYDROCHLORIDE
  16. OCUVITE [Concomitant]
     Active Substance: VITAMINS
  17. ISOSORBIDE. [Concomitant]
     Active Substance: ISOSORBIDE
  18. DILTIAZEM [Concomitant]
     Active Substance: DILTIAZEM
  19. KLOR-CON [Concomitant]
     Active Substance: POTASSIUM CHLORIDE
  20. ALBUTEROL. [Concomitant]
     Active Substance: ALBUTEROL
  21. HIZENTRA [Suspect]
     Active Substance: HUMAN IMMUNOGLOBULIN G
     Indication: IMMUNODEFICIENCY COMMON VARIABLE
     Dosage: 4 GM 20 ML VIAL
     Route: 058
     Dates: start: 20101229
  22. DIGOXIN. [Concomitant]
     Active Substance: DIGOXIN
  23. ALBUTEROL. [Concomitant]
     Active Substance: ALBUTEROL
  24. METOPROLOL. [Concomitant]
     Active Substance: METOPROLOL
  25. TAMSULOSIN [Concomitant]
     Active Substance: TAMSULOSIN
  26. TOPROL XL [Concomitant]
     Active Substance: METOPROLOL SUCCINATE
  27. GABAPENTIN. [Concomitant]
     Active Substance: GABAPENTIN
  28. PLAVIX [Concomitant]
     Active Substance: CLOPIDOGREL BISULFATE
  29. VITAMIN B [Concomitant]
     Active Substance: VITAMIN B
  30. TRAZODONE [Concomitant]
     Active Substance: TRAZODONE HYDROCHLORIDE
  31. FLONASE [Concomitant]
     Active Substance: FLUTICASONE PROPIONATE
  32. ADVAIR HFA [Concomitant]
     Active Substance: FLUTICASONE PROPIONATE\SALMETEROL XINAFOATE
  33. MAGNESIUM [Concomitant]
     Active Substance: MAGNESIUM
  34. OXYGEN. [Concomitant]
     Active Substance: OXYGEN
  35. CYMBALTA [Concomitant]
     Active Substance: DULOXETINE HYDROCHLORIDE
  36. LASIX [Concomitant]
     Active Substance: FUROSEMIDE
  37. PLAVIX [Concomitant]
     Active Substance: CLOPIDOGREL BISULFATE
  38. TYLENOL [Concomitant]
     Active Substance: ACETAMINOPHEN

REACTIONS (2)
  - Chronic obstructive pulmonary disease [Recovered/Resolved]
  - Coronary arterial stent insertion [Recovered/Resolved]
